FAERS Safety Report 8807757 (Version 1)
Quarter: 2012Q4

REPORT INFORMATION
  Report Type: 
  Country: FR (occurrence: FR)
  Receive Date: 20120925
  Receipt Date: 20120925
  Transmission Date: 20130627
  Serious: Yes (Other)
  Sender: FDA-Public Use
  Company Number: PHHY2012FR082482

PATIENT
  Age: 57 Year
  Sex: Male

DRUGS (2)
  1. VOLTARENE [Suspect]
     Indication: BACK PAIN
     Dosage: UNK
  2. VASTEN [Concomitant]
     Dosage: UNK

REACTIONS (7)
  - Diverticulitis [Recovered/Resolved]
  - Purulent discharge [Unknown]
  - Cholestasis [Unknown]
  - Hepatic lesion [Unknown]
  - Cell death [Unknown]
  - Flank pain [Unknown]
  - Inflammation [Unknown]
